FAERS Safety Report 8571016-9 (Version None)
Quarter: 2012Q3

REPORT INFORMATION
  Report Type: 
  Country: None (occurrence: None)
  Receive Date: 20120806
  Receipt Date: 20120731
  Transmission Date: 20120928
  Serious: Yes (Other)
  Sender: FDA-Public Use
  Company Number: US-009507513-1208USA000545

PATIENT

DRUGS (6)
  1. DULERA [Suspect]
     Dosage: 200MCG 2 PUFFS ONCE AND ALSO 100MCG IN SAME MANNER, BID
     Route: 055
     Dates: end: 20120401
  2. ASMANEX TWISTHALER [Concomitant]
  3. ALBUTEROL [Concomitant]
  4. FLOVENT [Concomitant]
  5. DULERA [Suspect]
     Indication: COUGH
     Dosage: 200MCG 2 PUFFS ONCE AND ALSO 100MCG IN SAME MANNER, BID
     Route: 055
     Dates: start: 20120319
  6. QVAR 40 [Concomitant]

REACTIONS (2)
  - APHONIA [None]
  - DYSPHONIA [None]
